FAERS Safety Report 7650967-3 (Version None)
Quarter: 2011Q3

REPORT INFORMATION
  Report Type: 
  Country: None (occurrence: None)
  Receive Date: 20110727
  Receipt Date: 20110711
  Transmission Date: 20111222
  Serious: Yes (Hospitalization, Other)
  Sender: FDA-Public Use
  Company Number: 2011MA008644

PATIENT
  Age: 8 Month
  Sex: Female
  Weight: 11 kg

DRUGS (1)
  1. CLOBETASOL PROPIONATE [Suspect]
     Indication: DERMATITIS DIAPER
     Dosage: 20 15 G/TUBES; Q3H; TOP
     Route: 061

REACTIONS (6)
  - RASH PUSTULAR [None]
  - SKIN CANDIDA [None]
  - HYPERTENSION [None]
  - ADRENAL INSUFFICIENCY [None]
  - CUSHING'S SYNDROME [None]
  - INTENTIONAL DRUG MISUSE [None]
